FAERS Safety Report 9349870 (Version 1)
Quarter: 2013Q2

REPORT INFORMATION
  Report Type: Spontaneous
  Country: US (occurrence: None)
  Receive Date: 20130611
  Receipt Date: 20130611
  Transmission Date: 20140414
  Serious: Yes (Death)
  Sender: FDA-Public Use
  Company Number: B0897852A

PATIENT
  Sex: 0

DRUGS (1)
  1. EPOPROSTENOL SODIUM [Suspect]
     Indication: PULMONARY ARTERIAL HYPERTENSION
     Dosage: TRANSPLACENTARY
     Route: 064

REACTIONS (4)
  - Maternal drugs affecting foetus [None]
  - Death neonatal [None]
  - Premature baby [None]
  - Death [None]
